FAERS Safety Report 5284125-7 (Version None)
Quarter: 2007Q2

REPORT INFORMATION
  Report Type: 
  Country: None (occurrence: None)
  Receive Date: 20070403
  Receipt Date: 20070328
  Transmission Date: 20071010
  Serious: Yes (Hospitalization)
  Sender: FDA-Public Use
  Company Number: GBWYE156902JUN03

PATIENT
  Sex: Male

DRUGS (14)
  1. RAPAMUNE [Suspect]
     Indication: IMMUNOSUPPRESSANT DRUG THERAPY
     Route: 048
     Dates: start: 20030512, end: 20030526
  2. OMEPRAZOLE [Concomitant]
     Indication: GASTRITIS
     Dosage: UNKNOWN
     Dates: start: 19950428
  3. FIBRE, DIETARY [Concomitant]
     Indication: CONSTIPATION PROPHYLAXIS
     Dosage: UNKNOWN
     Dates: start: 19960419
  4. OLSALAZINE [Concomitant]
     Indication: COLITIS ULCERATIVE
     Dosage: UNKNOWN
     Dates: start: 19960723
  5. INSULATARD [Concomitant]
     Indication: DIABETES MELLITUS
     Dosage: UNKNOWN
     Dates: start: 19970905
  6. SIMVASTATIN [Concomitant]
     Indication: HYPERCHOLESTEROLAEMIA
     Dosage: UNKNOWN
     Dates: start: 20020909
  7. PERINDOPRIL ERBUMINE [Concomitant]
     Indication: HYPERTENSION
     Dosage: UNKNOWN
     Dates: start: 19970808
  8. FUROSEMIDE [Concomitant]
     Indication: HYPERTENSION
     Dosage: UNKNOWN
     Dates: start: 19980714
  9. AMLODIPINE [Concomitant]
     Indication: HYPERTENSION
     Dosage: UNKNOWN
     Dates: start: 19980811
  10. DOXAZOSIN MESYLATE [Concomitant]
     Indication: HYPERTENSION
     Dosage: UNKNOWN
     Dates: start: 19990316, end: 20030519
  11. OXYTETRACYCLINE [Concomitant]
     Indication: ACNE
     Dosage: UNKNOWN
     Dates: start: 20010313
  12. PANOXYL AQ [Concomitant]
     Indication: ACNE
     Dosage: UNKNOWN
     Dates: start: 20010313
  13. SALBUTAMOL [Concomitant]
     Indication: ASTHMA
     Dosage: UNKNOWN
     Dates: start: 19950908
  14. HUMAN ACTRAPID [Concomitant]
     Indication: DIABETES MELLITUS
     Dosage: UNKNOWN
     Dates: start: 19970905

REACTIONS (7)
  - ACNE [None]
  - CONDITION AGGRAVATED [None]
  - CONJUNCTIVITIS [None]
  - COUGH [None]
  - DYSPNOEA [None]
  - PYREXIA [None]
  - RALES [None]
